FAERS Safety Report 10570742 (Version 1)
Quarter: 2014Q4

REPORT INFORMATION
  Report Type: Spontaneous
  Country: US (occurrence: None)
  Receive Date: 20141106
  Receipt Date: 20141106
  Transmission Date: 20150529
  Serious: Yes (Death, Hospitalization)
  Sender: FDA-Public Use
  Company Number: None

PATIENT
  Age: 81 Year
  Sex: Male
  Weight: 87.3 kg

DRUGS (2)
  1. CASODEX [Suspect]
     Active Substance: BICALUTAMIDE
     Dates: end: 20140919
  2. LEUPROLIDE ACETATE. [Suspect]
     Active Substance: LEUPROLIDE ACETATE
     Dosage: ELIGARD SQ
     Dates: end: 20140522

REACTIONS (5)
  - Gastrointestinal disorder [None]
  - Sudden death [None]
  - Bladder disorder [None]
  - Dysuria [None]
  - Coronary artery disease [None]

NARRATIVE: CASE EVENT DATE: 20141027
